FAERS Safety Report 6575402-8 (Version None)
Quarter: 2010Q1

REPORT INFORMATION
  Report Type: 
  Country: None (occurrence: None)
  Receive Date: 20100209
  Receipt Date: 20100204
  Transmission Date: 20100710
  Serious: Yes (Other)
  Sender: FDA-Public Use
  Company Number: GB-TEVA-223412ISR

PATIENT
  Sex: Female

DRUGS (1)
  1. GABAPENTIN [Suspect]

REACTIONS (1)
  - ANAPHYLACTOID REACTION [None]
